FAERS Safety Report 21174529 (Version 7)
Quarter: 2023Q2

REPORT INFORMATION
  Report Type: Spontaneous
  Country: US (occurrence: US)
  Receive Date: 20220805
  Receipt Date: 20230407
  Transmission Date: 20230722
  Serious: Yes (Other)
  Sender: FDA-Public Use
  Company Number: US-BIOGEN-2022BI01144375

PATIENT
  Age: 30 Year
  Sex: Female
  Weight: 77.3 kg

DRUGS (54)
  1. TYSABRI [Suspect]
     Active Substance: NATALIZUMAB
     Indication: Multiple sclerosis
     Route: 050
     Dates: start: 20130924, end: 20170914
  2. TYSABRI [Suspect]
     Active Substance: NATALIZUMAB
     Route: 050
     Dates: start: 20210826, end: 20220215
  3. TYSABRI [Suspect]
     Active Substance: NATALIZUMAB
     Route: 050
     Dates: start: 20210622, end: 20220407
  4. TYSABRI [Suspect]
     Active Substance: NATALIZUMAB
     Route: 050
     Dates: end: 20171024
  5. TYSABRI [Suspect]
     Active Substance: NATALIZUMAB
     Route: 050
     Dates: start: 20210622, end: 20220407
  6. TYSABRI [Suspect]
     Active Substance: NATALIZUMAB
     Route: 050
     Dates: start: 20170213
  7. VITAMIN D [Concomitant]
     Active Substance: VITAMIN D NOS
     Indication: Product used for unknown indication
     Route: 050
     Dates: start: 20210622
  8. VITAMIN D [Concomitant]
     Active Substance: VITAMIN D NOS
     Route: 050
     Dates: start: 20170522, end: 20180717
  9. VITAMIN D [Concomitant]
     Active Substance: VITAMIN D NOS
     Route: 050
     Dates: end: 20180209
  10. AMITRIPTYLINE HYDROCHLORIDE [Concomitant]
     Active Substance: AMITRIPTYLINE HYDROCHLORIDE
     Indication: Product used for unknown indication
     Dosage: 1 TAB PO QHS FOR 2 WEEKS THEN INCREASE TO 2 TABS PO QHS
     Route: 050
  11. AMPHETAMINE SULFATE\DEXTROAMPHETAMINE [Concomitant]
     Active Substance: AMPHETAMINE SULFATE\DEXTROAMPHETAMINE
     Indication: Product used for unknown indication
     Route: 050
     Dates: start: 20161121, end: 20171024
  12. AMPHETAMINE SULFATE\DEXTROAMPHETAMINE [Concomitant]
     Active Substance: AMPHETAMINE SULFATE\DEXTROAMPHETAMINE
     Route: 050
     Dates: start: 20180411, end: 20180717
  13. AMPHETAMINE SULFATE\DEXTROAMPHETAMINE [Concomitant]
     Active Substance: AMPHETAMINE SULFATE\DEXTROAMPHETAMINE
     Route: 050
     Dates: start: 20150223, end: 20150323
  14. BACLOFEN [Concomitant]
     Active Substance: BACLOFEN
     Indication: Product used for unknown indication
     Route: 050
     Dates: start: 20180717, end: 20191223
  15. BACLOFEN [Concomitant]
     Active Substance: BACLOFEN
     Route: 050
     Dates: start: 20140826, end: 20141126
  16. CELEXA [Concomitant]
     Active Substance: CITALOPRAM HYDROBROMIDE
     Indication: Product used for unknown indication
     Route: 050
     Dates: start: 20150112, end: 20170104
  17. CITALOPRAM HYDROBROMIDE [Concomitant]
     Active Substance: CITALOPRAM HYDROBROMIDE
     Indication: Product used for unknown indication
     Route: 050
     Dates: end: 20171024
  18. CONCERTA [Concomitant]
     Active Substance: METHYLPHENIDATE HYDROCHLORIDE
     Indication: Product used for unknown indication
     Route: 050
     Dates: start: 20151113, end: 20160209
  19. CYCLOPHOSPHAMIDE [Concomitant]
     Active Substance: CYCLOPHOSPHAMIDE
     Indication: Product used for unknown indication
     Route: 050
     Dates: end: 20200901
  20. DAPSONE [Concomitant]
     Active Substance: DAPSONE
     Indication: Product used for unknown indication
     Route: 050
     Dates: start: 20190820, end: 20200901
  21. DEXAMETHASONE [Concomitant]
     Active Substance: DEXAMETHASONE
     Indication: Product used for unknown indication
     Route: 050
     Dates: end: 20200901
  22. EPIDUO FORTE [Concomitant]
     Active Substance: ADAPALENE\BENZOYL PEROXIDE
     Indication: Product used for unknown indication
     Route: 050
     Dates: end: 20200901
  23. FERROUS SULFATE [Concomitant]
     Active Substance: FERROUS SULFATE
     Indication: Product used for unknown indication
     Route: 050
     Dates: start: 20180423, end: 20181022
  24. GABAPENTIN [Concomitant]
     Active Substance: GABAPENTIN
     Indication: Product used for unknown indication
     Route: 050
     Dates: end: 20170816
  25. GABAPENTIN [Concomitant]
     Active Substance: GABAPENTIN
     Route: 050
     Dates: start: 20131126, end: 20161121
  26. GABAPENTIN [Concomitant]
     Active Substance: GABAPENTIN
     Route: 050
     Dates: start: 20181022, end: 20190820
  27. GABAPENTIN [Concomitant]
     Active Substance: GABAPENTIN
     Route: 050
     Dates: start: 20220313, end: 20220629
  28. GABAPENTIN [Concomitant]
     Active Substance: GABAPENTIN
     Route: 050
     Dates: start: 20170816, end: 20210921
  29. RITALIN [Concomitant]
     Active Substance: METHYLPHENIDATE HYDROCHLORIDE
     Indication: Product used for unknown indication
     Dosage: 1 TAB IN THE MORNING AND 1 TAB NO LATER THAN 3PM PRN
     Route: 050
     Dates: start: 20150320, end: 20160120
  30. SOLU-MEDROL [Concomitant]
     Active Substance: METHYLPREDNISOLONE SODIUM SUCCINATE
     Indication: Product used for unknown indication
     Route: 050
     Dates: start: 20141126, end: 20181022
  31. SOLU-MEDROL [Concomitant]
     Active Substance: METHYLPREDNISOLONE SODIUM SUCCINATE
     Route: 050
     Dates: start: 20210419, end: 20210622
  32. MINOCYCLINE HYDROCHLORIDE [Concomitant]
     Active Substance: MINOCYCLINE HYDROCHLORIDE
     Indication: Product used for unknown indication
     Route: 050
     Dates: end: 20180717
  33. MINOCYCLINE HYDROCHLORIDE [Concomitant]
     Active Substance: MINOCYCLINE HYDROCHLORIDE
     Route: 050
     Dates: start: 20151214, end: 20180209
  34. MULTI COMPLETE [Concomitant]
     Indication: Product used for unknown indication
     Route: 050
  35. NEXIUM [Concomitant]
     Active Substance: ESOMEPRAZOLE MAGNESIUM
     Indication: Product used for unknown indication
     Route: 050
     Dates: start: 20171204, end: 20180209
  36. NORTRIPTYLINE [Concomitant]
     Active Substance: NORTRIPTYLINE
     Indication: Product used for unknown indication
     Dosage: 1 CAP PO AT BEDTIME FOR 2 WEEKS, THEN INCREASE TO 2 CAPS AT BEDTIME
     Route: 050
     Dates: start: 20210503, end: 20210921
  37. OMEGA 3 [Concomitant]
     Active Substance: CAPSAICIN
     Indication: Product used for unknown indication
     Route: 050
     Dates: end: 20210112
  38. OSELTAMIVIR PHOSPHATE [Concomitant]
     Active Substance: OSELTAMIVIR PHOSPHATE
     Indication: Product used for unknown indication
     Route: 050
  39. DITROPAN XL [Concomitant]
     Active Substance: OXYBUTYNIN CHLORIDE
     Indication: Product used for unknown indication
     Route: 050
     Dates: start: 20131126, end: 20140219
  40. SPIRONOLACTONE [Concomitant]
     Active Substance: SPIRONOLACTONE
     Indication: Product used for unknown indication
     Route: 050
     Dates: end: 20191223
  41. Sulfacetamide sodium-sulfur [Concomitant]
     Indication: Product used for unknown indication
     Route: 050
     Dates: start: 20190820, end: 20191223
  42. TOPIRAMATE [Concomitant]
     Active Substance: TOPIRAMATE
     Indication: Product used for unknown indication
     Route: 050
  43. TRAZODONE HCL [Concomitant]
     Active Substance: TRAZODONE HYDROCHLORIDE
     Indication: Product used for unknown indication
     Dosage: 1 TAB AT BEDTIME AS NEEDED
     Route: 050
  44. TRETINOIN [Concomitant]
     Active Substance: TRETINOIN
     Indication: Product used for unknown indication
     Dosage: APPLY A PEA-SIZED AMOUNT TO FACE, CHEST, BACK AT NIGHT. BEGIN USE EVERY OTHER NIGHT, THEN INCREAS...
     Route: 050
     Dates: start: 20151214, end: 20180209
  45. TRETINOIN [Concomitant]
     Active Substance: TRETINOIN
     Dosage: APPLY A PEA-SIZED AMOUNT TO FACE, CHEST, BACK AT NIGHT. BEGIN USE EVERY OTHER NIGHT, THEN INCREAS...
     Route: 050
     Dates: start: 20160129, end: 20180209
  46. VENOFER [Concomitant]
     Active Substance: IRON SUCROSE
     Indication: Product used for unknown indication
     Route: 050
     Dates: start: 20180816, end: 20190501
  47. VITAMIN D3 [Concomitant]
     Active Substance: CHOLECALCIFEROL
     Indication: Product used for unknown indication
     Route: 050
     Dates: start: 20141218, end: 20180209
  48. VITAMIN D3 [Concomitant]
     Active Substance: CHOLECALCIFEROL
     Route: 050
     Dates: start: 20210112, end: 20210512
  49. VITAMIN D3 [Concomitant]
     Active Substance: CHOLECALCIFEROL
     Route: 050
     Dates: start: 20180717, end: 20210112
  50. VITAMIN D3 [Concomitant]
     Active Substance: CHOLECALCIFEROL
     Route: 050
     Dates: end: 20170104
  51. VYVANSE [Concomitant]
     Active Substance: LISDEXAMFETAMINE DIMESYLATE
     Indication: Product used for unknown indication
     Route: 050
     Dates: start: 20160119, end: 20160209
  52. MODAFINIL [Concomitant]
     Active Substance: MODAFINIL
     Indication: Product used for unknown indication
     Route: 050
     Dates: start: 20150930, end: 20151112
  53. MODAFINIL [Concomitant]
     Active Substance: MODAFINIL
     Route: 050
     Dates: start: 20150316, end: 20150323
  54. CLINDAMYCIN PHOSPHATE [Concomitant]
     Active Substance: CLINDAMYCIN PHOSPHATE
     Indication: Product used for unknown indication
     Dosage: APPLY TO FACE, CHEST AND BACK IN THE MORNING
     Route: 050
     Dates: start: 20151214, end: 20180209

REACTIONS (2)
  - Breast cancer metastatic [Not Recovered/Not Resolved]
  - Prescribed underdose [Recovered/Resolved]

NARRATIVE: CASE EVENT DATE: 20190901
